FAERS Safety Report 17568975 (Version 2)
Quarter: 2020Q1

REPORT INFORMATION
  Report Type: Spontaneous
  Country: US (occurrence: US)
  Receive Date: 20200321
  Receipt Date: 20200330
  Transmission Date: 20200409
  Serious: Yes (Other)
  Sender: FDA-Public Use
  Company Number: US-AMGEN-USASP2020043755

PATIENT
  Age: 52 Year
  Sex: Female

DRUGS (1)
  1. ENBREL [Suspect]
     Active Substance: ETANERCEPT
     Indication: DERMATOMYOSITIS
     Dosage: 50 MILLIGRAM, QWK
     Route: 065
     Dates: start: 2019

REACTIONS (10)
  - Malaise [Unknown]
  - Off label use [Unknown]
  - Influenza [Unknown]
  - Autoimmune disorder [Unknown]
  - Cough [Unknown]
  - Injection site pain [Unknown]
  - Feeling abnormal [Unknown]
  - Ill-defined disorder [Unknown]
  - Sputum discoloured [Unknown]
  - Wrong technique in product usage process [Unknown]

NARRATIVE: CASE EVENT DATE: 2019
